FAERS Safety Report 8652949 (Version 3)
Quarter: 2014Q1

REPORT INFORMATION
  Report Type: Report from Study
  Country: US (occurrence: US)
  Receive Date: 20120706
  Receipt Date: 20140219
  Transmission Date: 20141002
  Serious: Yes (Hospitalization, Other)
  Sender: FDA-Public Use
  Company Number: US-ACTELION-A-US2012-67788

PATIENT
  Age: 58 Year
  Sex: Female

DRUGS (15)
  1. TRACLEER [Suspect]
     Indication: PULMONARY ARTERIAL HYPERTENSION
     Dosage: 62.5 MG BID
     Route: 048
     Dates: start: 201104
  2. COUMADIN [Concomitant]
  3. ALBUTEROL [Concomitant]
  4. LANTUS [Concomitant]
  5. HUMALOG [Concomitant]
  6. POTASSIUM [Concomitant]
  7. BUMETANIDE [Concomitant]
  8. VITAMIN B12 [Concomitant]
  9. ALLOPURINOL [Concomitant]
  10. SPIRONOLACTONE [Concomitant]
  11. CALCIUM [Concomitant]
  12. INDOMETHACIN [Concomitant]
  13. SPIRIVA HANDIHALER [Concomitant]
  14. ADVAIR [Concomitant]
  15. PERCOCET [Concomitant]

REACTIONS (12)
  - Lung infection [Unknown]
  - Liver disorder [Unknown]
  - Liver function test abnormal [Unknown]
  - Renal disorder [Unknown]
  - Neuropathy peripheral [Unknown]
  - Gait disturbance [Unknown]
  - Muscle tightness [Recovering/Resolving]
  - Limb discomfort [Unknown]
  - Muscle spasms [Unknown]
  - Epistaxis [Recovered/Resolved]
  - Hepatomegaly [Unknown]
  - Rash [Recovered/Resolved]
